FAERS Safety Report 21347677 (Version 1)
Quarter: 2022Q3

REPORT INFORMATION
  Report Type: Report from Study
  Country: US (occurrence: US)
  Receive Date: 20220919
  Receipt Date: 20220919
  Transmission Date: 20221026
  Serious: Yes (Other)
  Sender: FDA-Public Use
  Company Number: US-BAUSCH-BL-2022-021940

PATIENT
  Age: 60 Year
  Sex: Male

DRUGS (2)
  1. TRULANCE [Suspect]
     Active Substance: PLECANATIDE
     Indication: Constipation
     Dosage: STOPPED DUE TO EVENT BLOOD CLOT
     Route: 065
  2. TRULANCE [Suspect]
     Active Substance: PLECANATIDE
     Dosage: RESTARTED ON 3 MG, 1  TABLET DAILY
     Route: 065

REACTIONS (1)
  - Thrombosis [Unknown]
